FAERS Safety Report 12296959 (Version 2)
Quarter: 2016Q2

REPORT INFORMATION
  Report Type: Other
  Country: IT (occurrence: IT)
  Receive Date: 20160422
  Receipt Date: 20160520
  Transmission Date: 20160815
  Serious: Yes (Other)
  Sender: FDA-Public Use
  Company Number: IT-MYLANLABS-2016M1016563

PATIENT

DRUGS (1)
  1. MEMANTINE. [Suspect]
     Active Substance: MEMANTINE
     Indication: DEMENTIA ALZHEIMER^S TYPE
     Dosage: 10 MG, QD
     Route: 048

REACTIONS (3)
  - Product substitution issue [Recovered/Resolved]
  - Confusional state [Recovered/Resolved]
  - Psychomotor skills impaired [Recovered/Resolved]

NARRATIVE: CASE EVENT DATE: 20150301
